FAERS Safety Report 8173805-1 (Version None)
Quarter: 2012Q1

REPORT INFORMATION
  Report Type: 
  Country: None (occurrence: None)
  Receive Date: 20120229
  Receipt Date: 20120221
  Transmission Date: 20120608
  Serious: Yes (Death, Hospitalization)
  Sender: FDA-Public Use
  Company Number: US-ELI_LILLY_AND_COMPANY-US201111001434

PATIENT
  Sex: Female

DRUGS (8)
  1. FORTEO [Suspect]
     Indication: OSTEOPOROSIS
     Dosage: 20 UG, QD
     Route: 065
     Dates: start: 20111018, end: 20120216
  2. LIPITOR [Concomitant]
     Dosage: UNK, EACH EVENING
  3. LOPRESSOR [Concomitant]
     Dosage: UNK, BID
  4. REVATIO [Concomitant]
     Dosage: UNK, BID
  5. NIASPAN [Concomitant]
     Dosage: UNK, EACH EVENING
  6. FERROUS GLUCONATE [Concomitant]
     Dosage: UNK, BID
  7. PREDNISONE TAB [Concomitant]
     Dosage: UNK, EACH MORNING
  8. VITAMINS NOS [Concomitant]
     Dosage: UNK, BID

REACTIONS (6)
  - CARDIAC DISORDER [None]
  - PYREXIA [None]
  - BLOOD PRESSURE MANAGEMENT [None]
  - INFECTION [None]
  - ARTHRALGIA [None]
  - INTERSTITIAL LUNG DISEASE [None]
